FAERS Safety Report 6220392-0 (Version None)
Quarter: 2009Q2

REPORT INFORMATION
  Report Type: 
  Country: None (occurrence: None)
  Receive Date: 20090610
  Receipt Date: 20090605
  Transmission Date: 20091009
  Serious: Yes (Other)
  Sender: FDA-Public Use
  Company Number: US-BRISTOL-MYERS SQUIBB COMPANY-14651715

PATIENT
  Age: 56 Year
  Sex: Male

DRUGS (2)
  1. COUMADIN [Suspect]
     Indication: INTERNATIONAL NORMALISED RATIO FLUCTUATION
     Dosage: 10MG STRENGTH TAB-4 TABS/D.5MG STRENGTH TAB-1/D ,1AND1/2 TAB ON TUES,THUR,SAT + SUNDY.
     Route: 048
     Dates: start: 20071001
  2. GEMFIBROZIL [Suspect]
     Dosage: 1 DOSAGE FORM = TRIPLE DOSE SINCE OCT-2008
     Dates: start: 20081001

REACTIONS (6)
  - CHRONIC OBSTRUCTIVE PULMONARY DISEASE [None]
  - CONTUSION [None]
  - HYPERSENSITIVITY [None]
  - INTERNATIONAL NORMALISED RATIO FLUCTUATION [None]
  - MELAENA [None]
  - PAIN [None]
